FAERS Safety Report 16000507 (Version 2)
Quarter: 2020Q2

REPORT INFORMATION
  Report Type: Spontaneous
  Country: IT (occurrence: IT)
  Receive Date: 20190225
  Receipt Date: 20200622
  Transmission Date: 20200713
  Serious: Yes (Hospitalization, Other)
  Sender: FDA-Public Use
  Company Number: IT-BAYER-2019-036608

PATIENT
  Age: 67 Year
  Sex: Male

DRUGS (10)
  1. NEXAVAR [Suspect]
     Active Substance: SORAFENIB
     Indication: HEPATOCELLULAR CARCINOMA
     Dosage: DAILY DOSE 400 MG
     Dates: start: 201505, end: 201505
  2. NEXAVAR [Suspect]
     Active Substance: SORAFENIB
     Indication: HEPATOCELLULAR CARCINOMA
     Dosage: DAILY DOSE 400 MG
     Dates: start: 201503, end: 201503
  3. NEXAVAR [Suspect]
     Active Substance: SORAFENIB
     Indication: HEPATOCELLULAR CARCINOMA
     Dosage: DAILY DOSE 400 MG
     Dates: start: 201503, end: 201505
  4. NEXAVAR [Suspect]
     Active Substance: SORAFENIB
     Indication: HEPATOCELLULAR CARCINOMA
     Dosage: DAILY DOSE 200 MG
     Dates: start: 201506
  5. STIVARGA [Suspect]
     Active Substance: REGORAFENIB
     Indication: HEPATOCELLULAR CARCINOMA
     Dosage: 160 MG/DAY FOR 3 WEEKS
     Dates: start: 20180930
  6. STIVARGA [Suspect]
     Active Substance: REGORAFENIB
     Indication: HEPATOCELLULAR CARCINOMA
     Dosage: 120MG/DAY
     Dates: start: 2018
  7. NEXAVAR [Suspect]
     Active Substance: SORAFENIB
     Indication: HEPATOCELLULAR CARCINOMA
     Dosage: DAILY DOSE 800 MG
     Dates: start: 201502, end: 201503
  8. STIVARGA [Suspect]
     Active Substance: REGORAFENIB
     Indication: HEPATOCELLULAR CARCINOMA
     Dosage: 80 MG/DAY
     Dates: start: 201811
  9. STIVARGA [Suspect]
     Active Substance: REGORAFENIB
     Indication: HEPATOCELLULAR CARCINOMA
     Dosage: 160 MG DAILY, 3 WEEKS ON/1 WEEK OFF
     Dates: start: 201509, end: 201603
  10. STIVARGA [Suspect]
     Active Substance: REGORAFENIB
     Indication: HEPATOCELLULAR CARCINOMA
     Dosage: 80 MG 80 MG/DAY FOR 3 WEEKS
     Dates: start: 201810

REACTIONS (14)
  - Hypophosphataemia [Recovering/Resolving]
  - Hypophosphataemia [None]
  - Hepatic encephalopathy [None]
  - Diarrhoea [Recovering/Resolving]
  - Diarrhoea [None]
  - Hepatocellular carcinoma [Not Recovered/Not Resolved]
  - Hyperbilirubinaemia [None]
  - Metastases to adrenals [Recovering/Resolving]
  - Weight decreased [Recovering/Resolving]
  - Therapeutic product ineffective [None]
  - Hepatocellular carcinoma [None]
  - Metastases to lung [Recovered/Resolved]
  - Diarrhoea [Recovering/Resolving]
  - Weight decreased [None]

NARRATIVE: CASE EVENT DATE: 201503
